FAERS Safety Report 10486816 (Version 2)
Quarter: 2014Q4

REPORT INFORMATION
  Report Type: Report from Study
  Country: US (occurrence: US)
  Receive Date: 20141001
  Receipt Date: 20141010
  Transmission Date: 20150528
  Serious: Yes (Death, Hospitalization)
  Sender: FDA-Public Use
  Company Number: US-SA-2014SA133718

PATIENT
  Age: 63 Year
  Sex: Female
  Weight: 76 kg

DRUGS (47)
  1. AMINOCAPROIC ACID. [Concomitant]
     Active Substance: AMINOCAPROIC ACID
  2. HYDROCHLOROTHIAZIDE/LOSARTAN POTASSIUM [Concomitant]
     Active Substance: HYDROCHLOROTHIAZIDE\LOSARTAN POTASSIUM
  3. VORICONAZOLE. [Concomitant]
     Active Substance: VORICONAZOLE
  4. XANAX [Concomitant]
     Active Substance: ALPRAZOLAM
  5. BENZOCAINE. [Concomitant]
     Active Substance: BENZOCAINE
     Dosage: 1 LOZENGE
     Route: 048
  6. PANTOPRAZOLE [Concomitant]
     Active Substance: PANTOPRAZOLE SODIUM
  7. ALLOPURINOL. [Concomitant]
     Active Substance: ALLOPURINOL
     Route: 048
  8. DIPHENHYDRAMINE [Concomitant]
     Active Substance: DIPHENHYDRAMINE
     Route: 048
  9. MEROPENEM. [Concomitant]
     Active Substance: MEROPENEM
     Route: 042
  10. MAGNESIUM SULFATE. [Concomitant]
     Active Substance: MAGNESIUM SULFATE
     Route: 042
  11. HEPARIN [Concomitant]
     Active Substance: HEPARIN SODIUM
  12. FERROUS SULFATE [Concomitant]
     Active Substance: FERROUS SULFATE\FERROUS SULFATE, DRIED
     Route: 048
  13. SODIUM CHLORIDE. [Concomitant]
     Active Substance: SODIUM CHLORIDE
     Dosage: CONTINUOUS
     Route: 042
  14. INSULIN LISPRO [Concomitant]
     Active Substance: INSULIN LISPRO
     Dosage: 1-21 UNITS
     Route: 058
  15. GUAIFENESIN. [Concomitant]
     Active Substance: GUAIFENESIN
     Route: 048
  16. ASCORBIC ACID/BETACAROTENE/CALCIUM CARBONATE/CA. PANTOTHENATE/OMEGA-3 POLYUNSATURATED FATTY ACID [Concomitant]
     Route: 048
  17. DEXAMETHASONE. [Concomitant]
     Active Substance: DEXAMETHASONE
     Indication: ARTHRALGIA
  18. DEXTROSE. [Concomitant]
     Active Substance: DEXTROSE
     Route: 042
  19. LORAZEPAM. [Concomitant]
     Active Substance: LORAZEPAM
     Route: 048
  20. BIOTENE [Concomitant]
     Active Substance: SODIUM MONOFLUOROPHOSPHATE
     Dosage: DRY MOUTH ORAL RINSE
     Route: 048
  21. POTASSIUM CHLORIDE. [Concomitant]
     Active Substance: POTASSIUM CHLORIDE
     Route: 048
  22. OXYMETHOLONE [Concomitant]
     Active Substance: OXYMETHOLONE
  23. CALAMINE [Concomitant]
     Active Substance: CALAMINE\FERRIC OXIDE RED\ZINC OXIDE
     Dosage: CALAMINE LOTION
     Route: 061
  24. VITAMIN K [Concomitant]
     Active Substance: PHYTONADIONE
     Route: 048
  25. CARMELLOSE SODIUM [Concomitant]
     Active Substance: CARBOXYMETHYLCELLULOSE SODIUM
  26. CLOFARABINE [Suspect]
     Active Substance: CLOFARABINE
     Indication: ACUTE MYELOID LEUKAEMIA
     Route: 042
     Dates: start: 20140825, end: 20140829
  27. ACETAMINOPHEN. [Concomitant]
     Active Substance: ACETAMINOPHEN
  28. ALPRAZOLAM. [Concomitant]
     Active Substance: ALPRAZOLAM
     Route: 048
  29. VANCOMYCIN [Concomitant]
     Active Substance: VANCOMYCIN
  30. CIPROFLOXACIN. [Concomitant]
     Active Substance: CIPROFLOXACIN
     Route: 048
  31. ESCITALOPRAM [Concomitant]
     Active Substance: ESCITALOPRAM OXALATE
     Route: 048
     Dates: start: 20140826
  32. MORPHINE [Concomitant]
     Active Substance: MORPHINE
     Route: 042
  33. ONDANSETRON [Concomitant]
     Active Substance: ONDANSETRON
     Route: 048
  34. LIDOCAINE. [Concomitant]
     Active Substance: LIDOCAINE
     Dosage: EVERY 05 MIN
     Route: 058
  35. FUROSEMIDE. [Concomitant]
     Active Substance: FUROSEMIDE
     Route: 042
  36. ALTEPLASE [Concomitant]
     Active Substance: ALTEPLASE
  37. ZOFRAN [Concomitant]
     Active Substance: ONDANSETRON HYDROCHLORIDE
  38. SUCRALFATE. [Concomitant]
     Active Substance: SUCRALFATE
  39. VITAMIN K [Concomitant]
     Active Substance: PHYTONADIONE
  40. PREDNISONE. [Concomitant]
     Active Substance: PREDNISONE
  41. FLUCONAZOLE. [Concomitant]
     Active Substance: FLUCONAZOLE
     Route: 048
  42. FILGRASTIM [Concomitant]
     Active Substance: FILGRASTIM
     Route: 058
  43. AMOXICILLIN. [Concomitant]
     Active Substance: AMOXICILLIN
     Route: 048
  44. HYDROCORTISONE SODIUM SUCCINATE [Concomitant]
     Active Substance: HYDROCORTISONE SODIUM SUCCINATE
  45. MEROPENEM. [Concomitant]
     Active Substance: MEROPENEM
  46. ACYCLOVIR. [Concomitant]
     Active Substance: ACYCLOVIR
     Route: 048
  47. LOTENSIN [Concomitant]
     Active Substance: BENAZEPRIL HYDROCHLORIDE
     Route: 048

REACTIONS (3)
  - Febrile neutropenia [Recovered/Resolved]
  - Gastric haemorrhage [Fatal]
  - Mitral valve disease [Recovered/Resolved]

NARRATIVE: CASE EVENT DATE: 20140905
